FAERS Safety Report 4823493-4 (Version None)
Quarter: 2005Q4

REPORT INFORMATION
  Report Type: 
  Country: None (occurrence: None)
  Receive Date: 20051107
  Receipt Date: 20051019
  Transmission Date: 20060501
  Serious: Yes (Other)
  Sender: FDA-Public Use
  Company Number: TRP_0634_2005

PATIENT
  Age: 51 Year
  Sex: Male
  Weight: 79.8331 kg

DRUGS (2)
  1. RIBASPHERE [Suspect]
     Indication: HEPATITIS C
     Dosage: DF PO
     Route: 048
     Dates: start: 20050930
  2. PEG-INTRON [Suspect]
     Indication: HEPATITIS C
     Dosage: DF SC
     Route: 058
     Dates: start: 20050930

REACTIONS (4)
  - ANGER [None]
  - FEELING ABNORMAL [None]
  - IRRITABILITY [None]
  - SUICIDAL IDEATION [None]
